FAERS Safety Report 8137753 (Version 5)
Quarter: 2012Q4

REPORT INFORMATION
  Report Type: 
  Country: US (occurrence: US)
  Receive Date: 20110915
  Receipt Date: 20121221
  Transmission Date: 20130627
  Serious: Yes (Other)
  Sender: FDA-Public Use
  Company Number: US-PFIZER INC-2011206245

PATIENT
  Age: 78 Year
  Sex: Male
  Weight: 91.72 kg

DRUGS (10)
  1. PREGABALIN [Suspect]
     Indication: POST HERPETIC NEURALGIA
     Dosage: 165 mg, 1x/day
     Route: 048
     Dates: start: 20110804, end: 20110830
  2. PARACETAMOL [Suspect]
     Indication: POST HERPETIC NEURALGIA
     Dosage: 650 mg, PRN BID
     Route: 048
     Dates: start: 20110817, end: 20110901
  3. LOVASTATIN [Suspect]
     Indication: HYPERLIPIDEMIA
     Dosage: 20 mg, 1x/day
     Route: 048
     Dates: start: 2009
  4. OXYBUTYNIN [Concomitant]
     Indication: OVERACTIVE BLADDER
     Dosage: 5 mg, 1x/day
     Route: 048
     Dates: start: 2006
  5. LISINOPRIL [Concomitant]
     Indication: HYPERTENSION
     Dosage: 20 mg, 1x/day
     Dates: start: 2004
  6. SPIRONOLACTONE [Concomitant]
     Indication: HYPERTENSION
     Dosage: 25 mg, 1x/day
     Dates: start: 201107, end: 20110818
  7. SPIRONOLACTONE [Concomitant]
     Indication: ANKLE EDEMA
     Dosage: 50 mg, UNK
     Dates: start: 20110818
  8. SPIRONOLACTONE [Concomitant]
     Dosage: UNK
     Dates: start: 201107
  9. DIPHENHYDRAMINE [Concomitant]
     Indication: PRURITIS
     Dosage: 25 mg, every 6 hours
     Dates: start: 20110831
  10. ALLOPURINOL [Concomitant]
     Indication: GOUT
     Dosage: 300 mg, 1x/day
     Dates: start: 20110907

REACTIONS (1)
  - Liver function test abnormal [Recovered/Resolved]
